FAERS Safety Report 17891354 (Version 2)
Quarter: 2020Q2

REPORT INFORMATION
  Report Type: Spontaneous
  Country: US (occurrence: US)
  Receive Date: 20200612
  Receipt Date: 20200624
  Transmission Date: 20200714
  Serious: No
  Sender: FDA-Public Use
  Company Number: US-PFIZER INC-2020229833

PATIENT
  Age: 71 Year
  Sex: Female

DRUGS (1)
  1. IBRANCE [Suspect]
     Active Substance: PALBOCICLIB
     Indication: BREAST CANCER METASTATIC
     Dosage: UNK, CYCLIC (21 DAYS ON, 7 DAYS OFF)
     Dates: start: 20190611

REACTIONS (5)
  - Alopecia [Unknown]
  - Skin discolouration [Unknown]
  - Diarrhoea [Unknown]
  - Dry skin [Unknown]
  - Weight increased [Unknown]
